FAERS Safety Report 8698459 (Version 6)
Quarter: 2013Q2

REPORT INFORMATION
  Report Type: Report from Study
  Country: US (occurrence: US)
  Receive Date: 20120802
  Receipt Date: 20130425
  Transmission Date: 20140414
  Serious: Yes (Death, Hospitalization, Other)
  Sender: FDA-Public Use
  Company Number: US-ABBOTT-12P-163-0959655-00

PATIENT
  Age: 60 Year
  Sex: Male
  Weight: 149 kg

DRUGS (23)
  1. HUMIRA 40 MG/0.8 ML PEN [Suspect]
     Indication: PSORIATIC ARTHROPATHY
     Dates: end: 201209
  2. METHOTREXATE SODIUM [Suspect]
     Indication: PSORIATIC ARTHROPATHY
     Dosage: 2 TABLETS TWICE DAILY ON MONDAY ONLY
     Dates: end: 201209
  3. EFFIENT [Suspect]
     Indication: CORONARY ARTERY OCCLUSION
  4. LOSARTAN POTASSIUM [Concomitant]
     Indication: ELECTROLYTE SUBSTITUTION THERAPY
     Route: 048
  5. SPIRONOLACTONE [Concomitant]
     Indication: FLUID RETENTION
     Route: 048
  6. ASPIRIN [Concomitant]
     Indication: PRODUCT USED FOR UNKNOWN INDICATION
     Route: 048
  7. CELEXA [Concomitant]
     Indication: DEPRESSION
     Route: 048
  8. FERROUS SULFATE [Concomitant]
     Indication: MINERAL SUPPLEMENTATION
     Dosage: (65 MG IRON)
  9. GABAPENTIN [Concomitant]
     Indication: NEUROPATHY PERIPHERAL
     Route: 048
  10. GLYBURIDE [Concomitant]
     Indication: DIABETES MELLITUS
     Dosage: 10 MG DAILY
     Route: 048
  11. JANUVIA [Concomitant]
     Indication: DIABETES MELLITUS
     Route: 048
  12. METFORMIN HCL [Concomitant]
     Indication: DIABETES MELLITUS
     Dosage: 1 TABLET WITH MORNING AND EVENING MEALS
     Route: 048
  13. METHOTREXATE SODIUM [Concomitant]
     Indication: PSORIATIC ARTHROPATHY
     Dosage: 2 TABLETS TWICE DAILY ON MONDAY ONLY
     Dates: end: 201206
  14. RAMIPRIL [Concomitant]
     Indication: PRODUCT USED FOR UNKNOWN INDICATION
     Route: 048
  15. POTASSIUM CHLORIDE [Concomitant]
     Indication: PRODUCT USED FOR UNKNOWN INDICATION
     Dosage: WITH FOOD
     Route: 048
  16. LASIX [Concomitant]
     Indication: PRODUCT USED FOR UNKNOWN INDICATION
     Route: 048
  17. COREG [Concomitant]
     Indication: PRODUCT USED FOR UNKNOWN INDICATION
     Dosage: WITH FOOD
     Route: 048
  18. FOLIC ACID [Concomitant]
     Indication: PRODUCT USED FOR UNKNOWN INDICATION
     Route: 048
  19. MULTIVITAMIN [Concomitant]
     Indication: PRODUCT USED FOR UNKNOWN INDICATION
     Dosage: WITH FOOD
     Route: 048
  20. PRASUGREL HCL [Concomitant]
     Indication: PRODUCT USED FOR UNKNOWN INDICATION
     Route: 048
  21. NITROGLYCERIN [Concomitant]
     Indication: PRODUCT USED FOR UNKNOWN INDICATION
     Dosage: TAKE AT 1ST SIGN OF HEART ATTACK; MAY REPEAT EVERY 5 MIN UNTIL RELIEF
     Route: 060
  22. SIMVASTATIN [Concomitant]
     Indication: PRODUCT USED FOR UNKNOWN INDICATION
     Dosage: IN THE EVENING
     Route: 048
  23. PANTOPRAZOLE SODIUM [Concomitant]
     Indication: PRODUCT USED FOR UNKNOWN INDICATION
     Dosage: IN THE EVENING
     Route: 048

REACTIONS (16)
  - Cardiac disorder [Fatal]
  - Hepatic cirrhosis [Unknown]
  - Coronary artery stenosis [Recovered/Resolved]
  - Chest pain [Recovered/Resolved]
  - Post procedural haemorrhage [Recovered/Resolved]
  - Contusion [Recovered/Resolved]
  - Pancreatic disorder [Not Recovered/Not Resolved]
  - Coronary artery occlusion [Recovered/Resolved]
  - Device occlusion [Recovered/Resolved]
  - Chest pain [Unknown]
  - Device occlusion [Recovered/Resolved]
  - Portal hypertension [Unknown]
  - Dyspnoea exertional [Unknown]
  - Dizziness [Unknown]
  - Dizziness [Unknown]
  - Oedema peripheral [Unknown]
